FAERS Safety Report 20218498 (Version 1)
Quarter: 2021Q4

REPORT INFORMATION
  Report Type: Spontaneous
  Country: US (occurrence: US)
  Receive Date: 20211222
  Receipt Date: 20211222
  Transmission Date: 20220303
  Serious: No
  Sender: FDA-Public Use
  Company Number: US-BioHaven Pharmaceuticals-2021BHV000569

PATIENT
  Age: 80 Year
  Sex: Female
  Weight: 70.370 kg

DRUGS (8)
  1. NURTEC ODT [Suspect]
     Active Substance: RIMEGEPANT SULFATE
     Indication: Migraine
     Route: 048
     Dates: start: 2021
  2. CIMZIA [Concomitant]
     Active Substance: CERTOLIZUMAB PEGOL
     Indication: Crohn^s disease
     Route: 065
  3. SUMATRIPTAN [Concomitant]
     Active Substance: SUMATRIPTAN
     Indication: Migraine without aura
     Route: 065
  4. FENOFIBRATE [Concomitant]
     Active Substance: FENOFIBRATE
     Indication: Blood cholesterol
     Route: 065
  5. LISINOPRIL [Concomitant]
     Active Substance: LISINOPRIL
     Indication: Product used for unknown indication
     Route: 065
  6. METFORMIN [Concomitant]
     Active Substance: METFORMIN HYDROCHLORIDE
     Indication: Diabetes mellitus
     Route: 065
  7. PREDNISONE [Concomitant]
     Active Substance: PREDNISONE
     Indication: Crohn^s disease
     Route: 065
  8. INSULIN NOS [Concomitant]
     Active Substance: INSULIN NOS
     Indication: Diabetes mellitus
     Route: 065

REACTIONS (3)
  - Chemical burn of oral cavity [Recovered/Resolved]
  - Oral pain [Recovered/Resolved]
  - Mastication disorder [Recovered/Resolved]

NARRATIVE: CASE EVENT DATE: 20210101
